FAERS Safety Report 6347342-0 (Version None)
Quarter: 2009Q3

REPORT INFORMATION
  Report Type: 
  Country: None (occurrence: None)
  Receive Date: 20090910
  Receipt Date: 20090831
  Transmission Date: 20100115
  Serious: Yes (Hospitalization)
  Sender: FDA-Public Use
  Company Number: DE-JNJFOC-20090506744

PATIENT
  Age: 38 Year
  Sex: Male
  Weight: 100.3 kg

DRUGS (3)
  1. REMICADE [Suspect]
     Route: 042
     Dates: start: 20081223, end: 20090204
  2. REMICADE [Suspect]
     Indication: PSORIATIC ARTHROPATHY
     Route: 042
     Dates: start: 20081223, end: 20090204
  3. REMICADE [Suspect]
     Indication: PSORIASIS
     Route: 042
     Dates: start: 20081223, end: 20090204

REACTIONS (9)
  - ACUTE HEPATIC FAILURE [None]
  - ANTINUCLEAR ANTIBODY INCREASED [None]
  - CANDIDIASIS [None]
  - DOUBLE STRANDED DNA ANTIBODY [None]
  - HEPATIC CIRRHOSIS [None]
  - JAUNDICE [None]
  - NORMOCHROMIC NORMOCYTIC ANAEMIA [None]
  - PUSTULAR PSORIASIS [None]
  - TYMPANIC MEMBRANE PERFORATION [None]
